FAERS Safety Report 11238761 (Version 1)
Quarter: 2015Q3

REPORT INFORMATION
  Report Type: Spontaneous
  Country: CI (occurrence: CI)
  Receive Date: 20150706
  Receipt Date: 20150706
  Transmission Date: 20151125
  Serious: Yes (Other)
  Sender: FDA-Public Use
  Company Number: PHHY2015CI077258

PATIENT
  Age: 10 Year
  Sex: Female
  Weight: 35 kg

DRUGS (2)
  1. COARTEM [Suspect]
     Active Substance: ARTEMETHER\LUMEFANTRINE
     Indication: MALARIA
     Dosage: 4 DF, TID (FOR 3 DAYS)
     Route: 065
  2. CO-ARTESIANE [Suspect]
     Active Substance: ARTEMETHER\LUMEFANTRINE
     Indication: PRODUCT USED FOR UNKNOWN INDICATION
     Route: 065

REACTIONS (7)
  - Decreased appetite [Unknown]
  - Gingival erosion [Unknown]
  - Noninfective gingivitis [Unknown]
  - Gingival hyperplasia [Unknown]
  - Oral discomfort [Unknown]
  - Gingivitis [Unknown]
  - Gingival pain [Unknown]

NARRATIVE: CASE EVENT DATE: 20150617
